FAERS Safety Report 5378847-7 (Version None)
Quarter: 2007Q3

REPORT INFORMATION
  Report Type: 
  Country: None (occurrence: None)
  Receive Date: 20070705
  Receipt Date: 20070628
  Transmission Date: 20080115
  Serious: Yes (Hospitalization)
  Sender: FDA-Public Use
  Company Number: DE-ELI_LILLY_AND_COMPANY-DE200703005813

PATIENT
  Age: 56 Year
  Sex: Female

DRUGS (25)
  1. FORTEO [Suspect]
     Indication: OSTEOPOROTIC FRACTURE
     Route: 058
     Dates: start: 20070423
  2. FORTEO [Suspect]
     Dosage: UNK, UNK
     Route: 058
     Dates: start: 20070222, end: 20070311
  3. NEXIUM [Concomitant]
  4. LEVOTHYROXINE SODIUM [Concomitant]
     Route: 048
  5. RAMIPRIL [Concomitant]
  6. AMLODIPINE [Concomitant]
  7. PREDNISOLONE [Concomitant]
  8. AZATHIOPRINE [Concomitant]
  9. TORSEMIDE [Concomitant]
  10. MIRTAZAPINE [Concomitant]
  11. MORPHINE [Concomitant]
     Dosage: 1200 MG, UNK
  12. KALINOR [Concomitant]
  13. CALCIMAGON [Concomitant]
  14. COTRIM DS [Concomitant]
  15. AVELOX [Concomitant]
  16. SPASMO-MUCOSOLVAN [Concomitant]
  17. AMPHO-MORONAL [Concomitant]
  18. SPIRIVA [Concomitant]
  19. OXIS /SCH/ [Concomitant]
  20. CYCLOCAPS BECLAM [Concomitant]
  21. ALBUTEROL [Concomitant]
  22. ATROVENT [Concomitant]
  23. IMMUNOSUPPRESSIVE AGENTS [Concomitant]
  24. PROMETHAZINE [Concomitant]
  25. CORTISONE ACETATE [Concomitant]
     Dosage: 25 MG, DAILY (1/D)

REACTIONS (6)
  - BLOOD CREATININE INCREASED [None]
  - DEHYDRATION [None]
  - FATIGUE [None]
  - INFECTION [None]
  - RENAL FAILURE [None]
  - SOMNOLENCE [None]
